FAERS Safety Report 7265901-8 (Version None)
Quarter: 2011Q1

REPORT INFORMATION
  Report Type: 
  Country: None (occurrence: None)
  Receive Date: 20110131
  Receipt Date: 20110121
  Transmission Date: 20110831
  Serious: Yes (Hospitalization)
  Sender: FDA-Public Use
  Company Number: B0696125A

PATIENT
  Sex: Female
  Weight: 58 kg

DRUGS (4)
  1. VINORELBINE [Suspect]
  2. HERCEPTIN [Suspect]
  3. TYKERB [Suspect]
     Indication: BREAST CANCER
     Dates: start: 20100723
  4. CARBOPLATIN [Suspect]

REACTIONS (1)
  - FEBRILE NEUTROPENIA [None]
